FAERS Safety Report 9273587 (Version 2)
Quarter: 2013Q3

REPORT INFORMATION
  Report Type: Spontaneous
  Country: US (occurrence: US)
  Receive Date: 20130506
  Receipt Date: 20130708
  Transmission Date: 20140515
  Serious: No
  Sender: FDA-Public Use
  Company Number: US-AMGEN-USASP2013027149

PATIENT
  Age: 58 Year
  Sex: Male
  Weight: 100.23 kg

DRUGS (18)
  1. ENBREL [Suspect]
     Indication: RHEUMATOID ARTHRITIS
     Dosage: 50 MG, QWK
     Route: 058
     Dates: start: 20130408
  2. PLAVIX [Concomitant]
     Dosage: 75 MG, QD
  3. DEXILANT [Concomitant]
     Dosage: 60 MG, BID ALTERNATE WITH Q DAILY
  4. LOSARTAN POTASSIUM [Concomitant]
     Dosage: 100 MG, QD
  5. ISOSORBIDE DINITRATE [Concomitant]
     Dosage: 20 MG, BID
  6. NORCO [Concomitant]
     Dosage: 10-325 MG, 2 TABLETS QID PRN
  7. PAXIL                              /00500401/ [Concomitant]
     Dosage: 10 MG, QD
  8. BYSTOLIC [Concomitant]
     Dosage: 5 MG, QD
     Route: 048
  9. FLOMAX                             /01280302/ [Concomitant]
     Dosage: 0.4 MG, QD
  10. SIMCOR                             /00848101/ [Concomitant]
     Dosage: 40 MG, QD
  11. ASPIRIN [Concomitant]
     Dosage: 325 MG, QD
  12. CO Q 10                            /00517201/ [Concomitant]
     Dosage: 200 MG, QD
  13. GLUCOSAMINE CHONDROITIN COMPLEX    /06668701/ [Concomitant]
     Dosage: UNK, QD
  14. VITAMIN D                          /00107901/ [Concomitant]
     Dosage: 5000 IU, QD
  15. CALTRATE + D                       /07511201/ [Concomitant]
     Dosage: 600-400 MG, QD
  16. PREDNISONE [Concomitant]
     Dosage: 5 MG, 2 TABLETS WITH FOOD OR MILK ONCE A DAY
  17. METHOTREXATE [Concomitant]
     Dosage: 2.5 MG, 8 TABLETS WEEKLY
  18. FOLIC ACID [Concomitant]
     Dosage: 1 MG, QD
     Route: 048

REACTIONS (4)
  - Dizziness [Recovered/Resolved]
  - Vitamin D deficiency [Unknown]
  - Osteoporosis [Unknown]
  - Injection site discomfort [Recovered/Resolved]
